FAERS Safety Report 18716925 (Version 1)
Quarter: 2021Q1

REPORT INFORMATION
  Report Type: Spontaneous
  Country: US (occurrence: US)
  Receive Date: 20210107
  Receipt Date: 20210107
  Transmission Date: 20210419
  Serious: Yes (Death, Hospitalization)
  Sender: FDA-Public Use
  Company Number: None

PATIENT
  Age: 70 Year
  Sex: Male

DRUGS (1)
  1. APIXABAN (APIXABAN 2.5MG TAB) [Suspect]
     Active Substance: APIXABAN
     Dates: start: 20201031

REACTIONS (6)
  - Urinary tract infection [None]
  - Blood loss anaemia [None]
  - Sepsis [None]
  - General physical health deterioration [None]
  - Myelodysplastic syndrome [None]
  - Haemoglobin decreased [None]

NARRATIVE: CASE EVENT DATE: 20201031
